FAERS Safety Report 22257331 (Version 3)
Quarter: 2025Q3

REPORT INFORMATION
  Report Type: Spontaneous
  Country: US (occurrence: US)
  Receive Date: 20230427
  Receipt Date: 20250827
  Transmission Date: 20251021
  Serious: No
  Sender: AMGEN
  Company Number: US-AMGEN-USASP2023067151

PATIENT
  Sex: Female

DRUGS (4)
  1. PROLIA [Suspect]
     Active Substance: DENOSUMAB
     Indication: Osteoporosis postmenopausal
     Dosage: 60 MILLIGRAM, Q6MO
     Route: 065
     Dates: start: 2012
  2. VITAMIN D2 [Concomitant]
     Active Substance: ERGOCALCIFEROL
     Indication: Bone disorder
  3. VITAMIN D2 [Concomitant]
     Active Substance: ERGOCALCIFEROL
     Indication: Immune system disorder
  4. Bone Up [Concomitant]

REACTIONS (12)
  - Dry eye [Not Recovered/Not Resolved]
  - Dry mouth [Not Recovered/Not Resolved]
  - Dry skin [Not Recovered/Not Resolved]
  - Pain of skin [Unknown]
  - Oral pain [Unknown]
  - Eye pain [Unknown]
  - Skin exfoliation [Unknown]
  - Type V hyperlipidaemia [Unknown]
  - Tooth extraction [Unknown]
  - White blood cell count decreased [Unknown]
  - Dental implantation [Unknown]
  - Fall [Unknown]
